FAERS Safety Report 4525032-4 (Version None)
Quarter: 2004Q4

REPORT INFORMATION
  Report Type: 
  Country: None (occurrence: None)
  Receive Date: 20041117
  Receipt Date: 20031028
  Transmission Date: 20050328
  Serious: Yes (Other)
  Sender: FDA-Public Use
  Company Number: C2003-2836.01

PATIENT
  Age: 62 Year
  Sex: Female

DRUGS (1)
  1. CLOZAPINE [Suspect]
     Dosage: 400MG, QD, ORAL
     Route: 048
     Dates: end: 20030901

REACTIONS (1)
  - WHITE BLOOD CELL COUNT DECREASED [None]
